FAERS Safety Report 9025167 (Version 4)
Quarter: 2013Q3

REPORT INFORMATION
  Report Type: Spontaneous
  Country: US (occurrence: US)
  Receive Date: 20130122
  Receipt Date: 20130708
  Transmission Date: 20140515
  Serious: Yes (Hospitalization, Other)
  Sender: FDA-Public Use
  Company Number: US-009507513-1301USA010126

PATIENT
  Sex: Female
  Weight: 61.68 kg

DRUGS (4)
  1. FOSAMAX [Suspect]
     Indication: OSTEOPOROSIS
     Dosage: 70 MG, QW
     Route: 048
     Dates: start: 200211, end: 200803
  2. FOSAMAX [Suspect]
     Dosage: 35 MG, QW
     Route: 048
  3. ALENDRONATE SODIUM [Suspect]
     Indication: OSTEOPOROSIS
     Dosage: 70 MG, UNK
     Route: 048
     Dates: start: 200803, end: 200912
  4. HORMONES (UNSPECIFIED) [Concomitant]
     Dosage: UNK
     Dates: start: 1979

REACTIONS (21)
  - Femur fracture [Unknown]
  - Intramedullary rod insertion [Unknown]
  - Pubis fracture [Unknown]
  - Hip surgery [Unknown]
  - Pain [Unknown]
  - Pubis fracture [Unknown]
  - Oral surgery [Unknown]
  - Pubis fracture [Unknown]
  - Tooth extraction [Unknown]
  - Rectal polyp [Unknown]
  - Adenotonsillectomy [Unknown]
  - Chronic sinusitis [Not Recovered/Not Resolved]
  - Ethmoid sinus surgery [Unknown]
  - Oral infection [Unknown]
  - Osteoarthritis [Unknown]
  - Oedema [Unknown]
  - Blood pressure decreased [Unknown]
  - Chondrocalcinosis [Unknown]
  - Accident [Unknown]
  - Hyperaesthesia [Unknown]
  - Gastrooesophageal reflux disease [Unknown]
